FAERS Safety Report 12986173 (Version 2)
Quarter: 2017Q1

REPORT INFORMATION
  Report Type: Report from Study
  Country: US (occurrence: US)
  Receive Date: 20161130
  Receipt Date: 20170120
  Transmission Date: 20170428
  Serious: Yes (Life-Threatening, Hospitalization, Other)
  Sender: FDA-Public Use
  Company Number: US-ROCHE-1782209

PATIENT
  Age: 59 Year
  Sex: Female
  Weight: 83 kg

DRUGS (5)
  1. LEVAQUIN [Concomitant]
     Active Substance: LEVOFLOXACIN
  2. VELIPARIB [Suspect]
     Active Substance: VELIPARIB
     Indication: OVARIAN EPITHELIAL CANCER
     Dosage: CYCLE 1,2-6: 150 MG PO BID ON DAYS -2-5
     Route: 048
     Dates: start: 20150916, end: 20160126
  3. PACLITAXEL. [Suspect]
     Active Substance: PACLITAXEL
     Indication: OVARIAN EPITHELIAL CANCER
     Dosage: CYCLE1 AND CYCLES 2-6: 175 MG/M2 IV OVER 3 HRS ON DAY 1
     Route: 042
     Dates: start: 20150916, end: 20160106
  4. BEVACIZUMAB [Suspect]
     Active Substance: BEVACIZUMAB
     Indication: OVARIAN EPITHELIAL CANCER
     Dosage: CYCLES 2-6: 15MG/KG IV OVER 30-90 MINS. ON DAY 1?CYCLES 7-22: 15 MG/KG IV OVER 30-90 MINS ON DAY 1?D
     Route: 042
     Dates: start: 20151007, end: 20160405
  5. CARBOPLATIN. [Suspect]
     Active Substance: CARBOPLATIN
     Indication: OVARIAN EPITHELIAL CANCER
     Dosage: CYCLE 1 AND CYCLE 2-6: AUC = 6 IV OVER 30 MINS ON DAY 1
     Route: 042
     Dates: start: 20150916, end: 20160106

REACTIONS (9)
  - Lung infection [Recovered/Resolved]
  - White blood cell count decreased [Unknown]
  - Myocardial infarction [Recovered/Resolved]
  - Neutrophil count decreased [Unknown]
  - Pulmonary oedema [Recovered/Resolved]
  - Anaemia [Unknown]
  - Hypertension [Recovered/Resolved]
  - Hypomagnesaemia [Unknown]
  - Urinary tract infection [Recovered/Resolved]

NARRATIVE: CASE EVENT DATE: 20160426
